FAERS Safety Report 12048653 (Version 1)
Quarter: 2016Q1

REPORT INFORMATION
  Report Type: Spontaneous
  Country: ES (occurrence: ES)
  Receive Date: 20160208
  Receipt Date: 20160208
  Transmission Date: 20160526
  Serious: Yes (Other)
  Sender: FDA-Public Use
  Company Number: PHHY2016ES014302

PATIENT
  Age: 62 Year
  Sex: Female

DRUGS (2)
  1. ENOXAPARIN [Suspect]
     Active Substance: ENOXAPARIN
     Indication: DEEP VEIN THROMBOSIS
     Dosage: 60 MG, Q12H
     Route: 065
  2. ACENOCOUMAROL [Concomitant]
     Active Substance: ACENOCOUMAROL
     Indication: ANTICOAGULANT THERAPY
     Route: 065

REACTIONS (1)
  - Hepatotoxicity [Recovered/Resolved]
